FAERS Safety Report 8963109 (Version 1)
Quarter: 2012Q4

REPORT INFORMATION
  Report Type: Spontaneous
  Country: US (occurrence: None)
  Receive Date: 20121206
  Receipt Date: 20121206
  Transmission Date: 20130627
  Serious: Yes (Hospitalization)
  Sender: FDA-Public Use
  Company Number: 2012033988

PATIENT
  Age: 45 Year
  Sex: Female

DRUGS (1)
  1. IVIG [Suspect]

REACTIONS (5)
  - Nervous system disorder [None]
  - Autoimmune disorder [None]
  - Vertigo [None]
  - Diplopia [None]
  - Gait disturbance [None]
